FAERS Safety Report 8258422-7 (Version None)
Quarter: 2012Q2

REPORT INFORMATION
  Report Type: 
  Country: None (occurrence: None)
  Receive Date: 20120403
  Receipt Date: 20120403
  Transmission Date: 20120825
  Serious: Yes (Other)
  Sender: FDA-Public Use
  Company Number: None

PATIENT
  Age: 23 Year
  Sex: Female
  Weight: 61.2356 kg

DRUGS (3)
  1. RIBAVIRIN [Suspect]
     Indication: HEPATITIS C
     Dosage: 2 IN AM  3 IN PM
     Dates: start: 20120319, end: 20120323
  2. PEGASYS [Concomitant]
  3. ALBUTEROL [Concomitant]

REACTIONS (1)
  - PREGNANCY TEST POSITIVE [None]
